FAERS Safety Report 8390520-X (Version None)
Quarter: 2012Q2

REPORT INFORMATION
  Report Type: 
  Country: None (occurrence: None)
  Receive Date: 20120529
  Receipt Date: 20120522
  Transmission Date: 20120825
  Serious: Yes (Other)
  Sender: FDA-Public Use
  Company Number: DE-GENZYME-CAMP-1002245

PATIENT

DRUGS (12)
  1. PREDNISOLONE [Concomitant]
     Indication: PREMEDICATION
     Dosage: UNK
     Route: 065
  2. THYMOGLOBULIN [Suspect]
     Indication: PRODUCT USED FOR UNKNOWN INDICATION
     Dosage: 114 MG, ONCE
     Route: 065
     Dates: start: 20120209, end: 20120209
  3. ACETAMINOPHEN [Concomitant]
     Indication: PREMEDICATION
     Dosage: UNK
     Route: 065
  4. ACYCLOVIR [Concomitant]
     Indication: PROPHYLAXIS
     Dosage: UNK
     Route: 065
  5. FLUDARA [Suspect]
     Indication: PRODUCT USED FOR UNKNOWN INDICATION
     Dosage: 55.5 MG, UNK
     Route: 042
  6. THIOTEPA [Concomitant]
     Indication: PRODUCT USED FOR UNKNOWN INDICATION
     Dosage: 380 MG, UNK
     Route: 065
  7. CLEMASTINE FUMARATE [Concomitant]
     Indication: PREMEDICATION
     Dosage: UNK
     Route: 065
  8. MABCAMPATH [Suspect]
     Indication: BONE MARROW CONDITIONING REGIMEN
     Dosage: 10 MG, QD
     Route: 065
     Dates: start: 20120211, end: 20120213
  9. RANITIDINE [Concomitant]
     Indication: PREMEDICATION
     Dosage: UNK
     Route: 065
  10. VORICONAZOLE [Concomitant]
     Indication: PROPHYLAXIS
     Dosage: UNK
     Route: 065
  11. BUSULFAN [Concomitant]
     Indication: PRODUCT USED FOR UNKNOWN INDICATION
     Dosage: 243 MG, UNK
     Route: 042
  12. COTRIM [Concomitant]
     Indication: PROPHYLAXIS
     Dosage: UNK
     Route: 065

REACTIONS (3)
  - T-LYMPHOCYTE COUNT DECREASED [None]
  - SYSTEMIC INFLAMMATORY RESPONSE SYNDROME [None]
  - ANAPHYLACTIC REACTION [None]
